FAERS Safety Report 17260896 (Version 2)
Quarter: 2020Q1

REPORT INFORMATION
  Report Type: Report from Study
  Country: US (occurrence: US)
  Receive Date: 20200113
  Receipt Date: 20200128
  Transmission Date: 20200409
  Serious: Yes (Hospitalization, Other)
  Sender: FDA-Public Use
  Company Number: US-ROCHE-2515806

PATIENT
  Age: 66 Year
  Sex: Female
  Weight: 103.9 kg

DRUGS (8)
  1. LIPOSOMAL DOXORUBICIN HYDROCHLORIDE [Suspect]
     Active Substance: DOXORUBICIN HYDROCHLORIDE
     Indication: MALIGNANT PERITONEAL NEOPLASM
     Dosage: 40 MG/M2 IV OVER 1 HOUR ON DAY 1?PATIENT RECEIVED CYCLE 3 DAY 1 DOSE BUT NOT THE CYCLE DAY 15 DOSE.
     Route: 042
     Dates: start: 20191108
  2. LIPOSOMAL DOXORUBICIN HYDROCHLORIDE [Suspect]
     Active Substance: DOXORUBICIN HYDROCHLORIDE
     Route: 042
     Dates: start: 20190110, end: 20190110
  3. ATEZOLIZUMAB. [Suspect]
     Active Substance: ATEZOLIZUMAB
     Indication: MALIGNANT PERITONEAL NEOPLASM
     Dosage: 800 MG IV OVER 1 HOUR ON DAYS 1 AND 15?PATIENT RECEIVED CYCLE 3 DAY 1 DOSE, BUT NOT THE CYCLE 3 DAY
     Route: 042
     Dates: start: 20181108
  4. ATEZOLIZUMAB. [Suspect]
     Active Substance: ATEZOLIZUMAB
     Route: 042
     Dates: start: 20190110, end: 20190110
  5. BEVACIZUMAB. [Suspect]
     Active Substance: BEVACIZUMAB
     Route: 042
     Dates: start: 20190110, end: 20190110
  6. CARBOPLATIN. [Concomitant]
     Active Substance: CARBOPLATIN
     Route: 065
     Dates: start: 201709, end: 201804
  7. BEVACIZUMAB. [Suspect]
     Active Substance: BEVACIZUMAB
     Indication: MALIGNANT PERITONEAL NEOPLASM
     Dosage: 10 MG/KG IV OVER 90 MINUTES ON DAYS 1 AND 15?PATIENT RECEIVED CYCLE 3 DAY 1 DOSE BUT NOT THE CYCLE 3
     Route: 042
     Dates: start: 20181108
  8. TAXOL [Concomitant]
     Active Substance: PACLITAXEL

REACTIONS (7)
  - Fatigue [Unknown]
  - Hypoxia [Recovered/Resolved]
  - Rash maculo-papular [Recovered/Resolved]
  - Pneumonitis [Unknown]
  - Cholecystitis [Unknown]
  - Abdominal pain [Unknown]
  - Dyspnoea [Recovered/Resolved]

NARRATIVE: CASE EVENT DATE: 20181228
